FAERS Safety Report 7973858-7 (Version None)
Quarter: 2011Q4

REPORT INFORMATION
  Report Type: 
  Country: None (occurrence: None)
  Receive Date: 20111201
  Receipt Date: 20111123
  Transmission Date: 20120403
  Serious: Yes (Hospitalization)
  Sender: FDA-Public Use
  Company Number: 2011SP054958

PATIENT
  Sex: Male

DRUGS (2)
  1. METFORMIN HCL [Concomitant]
  2. PEGATRON (PEGYLATED INTERFERON ALFA-2B W/RIBAVIRIN) [Suspect]
     Indication: HEPATITIS C

REACTIONS (2)
  - MALAISE [None]
  - BLOOD GLUCOSE INCREASED [None]
